FAERS Safety Report 25593907 (Version 1)
Quarter: 2025Q3

REPORT INFORMATION
  Report Type: Spontaneous
  Country: JP (occurrence: JP)
  Receive Date: 20250723
  Receipt Date: 20250723
  Transmission Date: 20251020
  Serious: Yes (Other)
  Sender: NOVARTIS
  Company Number: JP-002147023-NVSJ2025JP007486

PATIENT
  Age: 70 Year
  Sex: Male

DRUGS (2)
  1. SACUBITRIL\VALSARTAN [Suspect]
     Active Substance: SACUBITRIL\VALSARTAN
     Indication: Hypertension
     Route: 048
  2. CARPERITIDE [Suspect]
     Active Substance: CARPERITIDE
     Indication: Hypertension
     Route: 041

REACTIONS (2)
  - Blood pressure systolic decreased [Unknown]
  - Loss of consciousness [Unknown]
